FAERS Safety Report 5336760-5 (Version None)
Quarter: 2007Q2

REPORT INFORMATION
  Report Type: 
  Country: None (occurrence: None)
  Receive Date: 20070529
  Receipt Date: 20070517
  Transmission Date: 20071010
  Serious: Yes (Hospitalization)
  Sender: FDA-Public Use
  Company Number: PHHO2007US08528

PATIENT
  Age: 51 Year
  Sex: Male

DRUGS (1)
  1. PROLEUKIN [Suspect]
     Indication: METASTATIC MALIGNANT MELANOMA
     Dosage: 720000 IU/KG 1/8 HR
     Route: 042
     Dates: start: 20030701

REACTIONS (2)
  - HYPOPHOSPHATAEMIA [None]
  - LYMPHOPENIA [None]
